FAERS Safety Report 4365031-9 (Version None)
Quarter: 2004Q2

REPORT INFORMATION
  Report Type: 
  Country: None (occurrence: None)
  Receive Date: 20040521
  Receipt Date: 20040511
  Transmission Date: 20050107
  Serious: Yes (Hospitalization)
  Sender: FDA-Public Use
  Company Number: 2004032137

PATIENT
  Age: 53 Year
  Sex: Male

DRUGS (6)
  1. AMLODIPINE [Suspect]
     Indication: ILL-DEFINED DISORDER
     Dosage: (5 MG,) ORAL
     Route: 048
     Dates: start: 20011217
  2. LAMIVUDINE (LAMIVUDINE) [Suspect]
     Indication: ILL-DEFINED DISORDER
     Dosage: ORAL
     Route: 048
     Dates: start: 20010106
  3. ALLOPURINOL [Suspect]
     Indication: ILL-DEFINED DISORDER
     Dosage: (200 MG, ) ORAL
     Route: 048
     Dates: start: 20010330, end: 20030707
  4. GLYBURIDE [Suspect]
     Indication: ILL-DEFINED DISORDER
     Dosage: (5 MG,) ORAL
     Route: 048
     Dates: start: 20020722, end: 20040107
  5. URSODEOXYCHOLIC ACID (UROSDEOXYCHOLIC ACID) [Suspect]
     Indication: ILL-DEFINED DISORDER
     Dosage: ORAL
     Route: 048
     Dates: start: 20010106
  6. TACROLIMUS (TACROLIMUS) [Suspect]
     Indication: ILL-DEFINED DISORDER
     Dosage: (1 MG, ) ORAL
     Route: 048
     Dates: start: 20010106

REACTIONS (3)
  - AGRANULOCYTOSIS [None]
  - ANAEMIA [None]
  - LIVER TRANSPLANT [None]
